FAERS Safety Report 9527137 (Version 1)
Quarter: 2013Q3

REPORT INFORMATION
  Report Type: Report from Study
  Country: US (occurrence: US)
  Receive Date: 20130916
  Receipt Date: 20130916
  Transmission Date: 20140515
  Serious: Yes (Other)
  Sender: FDA-Public Use
  Company Number: US-ROCHE-1275457

PATIENT
  Sex: 0

DRUGS (2)
  1. RITUXAN [Suspect]
     Indication: GRANULOMATOSIS WITH POLYANGIITIS
     Route: 065
  2. RITUXAN [Suspect]
     Indication: MICROSCOPIC POLYANGIITIS

REACTIONS (1)
  - Progressive multifocal leukoencephalopathy [Unknown]
